FAERS Safety Report 4315563-4 (Version None)
Quarter: 2004Q1

REPORT INFORMATION
  Report Type: 
  Country: None (occurrence: None)
  Receive Date: 20040311
  Receipt Date: 20040301
  Transmission Date: 20041129
  Serious: Yes (Other)
  Sender: FDA-Public Use
  Company Number: JP-ROCHE-360557

PATIENT
  Age: 68 Year
  Sex: Male
  Weight: 51.5 kg

DRUGS (4)
  1. TAMIFLU [Suspect]
     Route: 048
  2. ADALAT [Concomitant]
     Indication: HYPERTENSION
     Route: 048
     Dates: start: 20030415
  3. LASIX [Concomitant]
     Route: 048
     Dates: start: 20030515
  4. ZYLORIC [Concomitant]
     Route: 048
     Dates: start: 20030515

REACTIONS (7)
  - ANAEMIA [None]
  - BLOOD PRESSURE DIASTOLIC DECREASED [None]
  - BLOOD PRESSURE SYSTOLIC INCREASED [None]
  - HAEMODIALYSIS [None]
  - HALLUCINATION [None]
  - NECROTISING OESOPHAGITIS [None]
  - RESTLESSNESS [None]
